FAERS Safety Report 4454070-5 (Version None)
Quarter: 2004Q3

REPORT INFORMATION
  Report Type: 
  Country: None (occurrence: None)
  Receive Date: 20040920
  Receipt Date: 20040908
  Transmission Date: 20050211
  Serious: Yes (Life-Threatening, Hospitalization)
  Sender: FDA-Public Use
  Company Number: JP-BRISTOL-MYERS SQUIBB COMPANY-12699708

PATIENT
  Age: 38 Year
  Sex: Male

DRUGS (2)
  1. DESYREL [Suspect]
     Indication: SUICIDE ATTEMPT
     Route: 048
     Dates: start: 20040804, end: 20040804
  2. ALPRAZOLAM [Suspect]
     Indication: SUICIDE ATTEMPT
     Route: 048
     Dates: start: 20040804, end: 20040804

REACTIONS (5)
  - COMA [None]
  - FAECAL INCONTINENCE [None]
  - INTENTIONAL OVERDOSE [None]
  - SUICIDE ATTEMPT [None]
  - URINARY INCONTINENCE [None]
